FAERS Safety Report 15151056 (Version 1)
Quarter: 2018Q3

REPORT INFORMATION
  Report Type: Spontaneous
  Country: US (occurrence: US)
  Receive Date: 20180716
  Receipt Date: 20180716
  Transmission Date: 20181010
  Serious: No
  Sender: FDA-Public Use
  Company Number: US-SA-2018SA182285

PATIENT
  Sex: Female

DRUGS (11)
  1. NAMENDA [Concomitant]
     Active Substance: MEMANTINE HYDROCHLORIDE
  2. ALPRAZOLAM. [Concomitant]
     Active Substance: ALPRAZOLAM
  3. LISINOPRIL. [Concomitant]
     Active Substance: LISINOPRIL
  4. AUBAGIO [Suspect]
     Active Substance: TERIFLUNOMIDE
     Indication: PRODUCT USED FOR UNKNOWN INDICATION
     Dosage: 14 MG, QD
     Route: 048
     Dates: start: 20180612
  5. SERTRALINE HCL [Concomitant]
     Active Substance: SERTRALINE HYDROCHLORIDE
  6. PROPRANOLOL [Concomitant]
     Active Substance: PROPRANOLOL HYDROCHLORIDE
  7. ESTRADIOL. [Concomitant]
     Active Substance: ESTRADIOL
  8. PRAVACHOL [Concomitant]
     Active Substance: PRAVASTATIN SODIUM
  9. FLEXERIL [CEFIXIME] [Concomitant]
  10. FLUTICASONE. [Concomitant]
     Active Substance: FLUTICASONE
  11. SERTRALINE [Concomitant]
     Active Substance: SERTRALINE HYDROCHLORIDE

REACTIONS (3)
  - Swelling [Unknown]
  - Headache [Unknown]
  - Anxiety [Unknown]
